FAERS Safety Report 15564769 (Version 2)
Quarter: 2020Q1

REPORT INFORMATION
  Report Type: Spontaneous
  Country: US (occurrence: US)
  Receive Date: 20181030
  Receipt Date: 20200113
  Transmission Date: 20200409
  Serious: No
  Sender: FDA-Public Use
  Company Number: US-PFIZER INC-2018431125

PATIENT
  Age: 63 Year
  Sex: Female

DRUGS (10)
  1. MEPERIDINE HCL [Suspect]
     Active Substance: MEPERIDINE HYDROCHLORIDE
     Dosage: UNK
  2. MORPHINE SULFATE. [Suspect]
     Active Substance: MORPHINE SULFATE
     Dosage: UNK
  3. MOBIC [Suspect]
     Active Substance: MELOXICAM
     Dosage: UNK
  4. PERCOCET [Suspect]
     Active Substance: ACETAMINOPHEN\OXYCODONE HYDROCHLORIDE
     Dosage: UNK
  5. ASPIRIN [ACETYLSALICYLIC ACID] [Suspect]
     Active Substance: ASPIRIN
     Dosage: UNK
  6. BACTRIM DS [Suspect]
     Active Substance: SULFAMETHOXAZOLE\TRIMETHOPRIM
     Dosage: UNK
  7. AMITRIPTYLINE [Suspect]
     Active Substance: AMITRIPTYLINE
     Dosage: UNK
  8. BUTORPHANOL TARTRATE. [Suspect]
     Active Substance: BUTORPHANOL TARTRATE
     Dosage: UNK
  9. CODEINE [Suspect]
     Active Substance: CODEINE
     Dosage: UNK
  10. PENICILLAMINE [Suspect]
     Active Substance: PENICILLAMINE
     Dosage: UNK

REACTIONS (1)
  - Drug hypersensitivity [Unknown]
